FAERS Safety Report 9093989 (Version 2)
Quarter: 2013Q1

REPORT INFORMATION
  Report Type: Spontaneous
  Country: SA (occurrence: SA)
  Receive Date: 20130201
  Receipt Date: 20130208
  Transmission Date: 20140127
  Serious: Yes (Life-Threatening, Hospitalization)
  Sender: FDA-Public Use
  Company Number: SA-ROCHE-1186631

PATIENT
  Age: 66 Year
  Sex: Female
  Weight: 80.09 kg

DRUGS (6)
  1. XOLAIR [Suspect]
     Indication: ASTHMA
     Route: 058
     Dates: start: 20130128
  2. DIPROFOS [Concomitant]
  3. SYMBICORT [Concomitant]
  4. CONCOR PLUS [Concomitant]
  5. SINGULAIR [Concomitant]
  6. AMLODIPINE [Concomitant]
     Indication: HYPERTENSION

REACTIONS (2)
  - Cardiac failure [Unknown]
  - Hypertension [Recovered/Resolved]
